FAERS Safety Report 14677894 (Version 2)
Quarter: 2018Q2

REPORT INFORMATION
  Report Type: Report from Study
  Country: None (occurrence: TN)
  Receive Date: 20180326
  Receipt Date: 20180410
  Transmission Date: 20180711
  Serious: Yes (Hospitalization, Other)
  Sender: FDA-Public Use
  Company Number: TN-ABBVIE-18K-160-2295105-00

PATIENT
  Age: 22 Year
  Sex: Female
  Weight: 54 kg

DRUGS (3)
  1. SALAZOPYRINE [Concomitant]
     Active Substance: SULFASALAZINE
     Indication: PRODUCT USED FOR UNKNOWN INDICATION
     Dates: start: 2010, end: 2016
  2. HUMIRA [Suspect]
     Active Substance: ADALIMUMAB
     Indication: CROHN^S DISEASE
     Route: 058
     Dates: start: 20160718, end: 20180128
  3. SALAZOPYRINE [Concomitant]
     Active Substance: SULFASALAZINE
     Dates: start: 20180212

REACTIONS (10)
  - Anal fistula [Recovering/Resolving]
  - Procedural pain [Unknown]
  - C-reactive protein increased [Recovering/Resolving]
  - Incision site swelling [Recovered/Resolved]
  - Nodule [Unknown]
  - Pain in extremity [Recovered/Resolved]
  - Pain in extremity [Recovered/Resolved]
  - Gait disturbance [Recovered/Resolved]
  - Postoperative wound infection [Recovered/Resolved]
  - Anal abscess [Recovering/Resolving]

NARRATIVE: CASE EVENT DATE: 2018
